FAERS Safety Report 20939111 (Version 2)
Quarter: 2022Q3

REPORT INFORMATION
  Report Type: Report from Study
  Country: US (occurrence: US)
  Receive Date: 20220609
  Receipt Date: 20220902
  Transmission Date: 20221027
  Serious: Yes (Other)
  Sender: FDA-Public Use
  Company Number: US-BIOVITRUM-2022US07433

PATIENT
  Age: 17 Year
  Sex: Female

DRUGS (1)
  1. KINERET [Suspect]
     Active Substance: ANAKINRA
     Indication: Still^s disease
     Dates: start: 20220517

REACTIONS (11)
  - Kidney infection [Unknown]
  - Erythema [Unknown]
  - Skin warm [Unknown]
  - Pain [Recovering/Resolving]
  - Swelling [Recovering/Resolving]
  - Pain in extremity [Unknown]
  - Infection [Unknown]
  - Urticaria [Unknown]
  - Exposure during pregnancy [Unknown]
  - Product dose omission issue [Unknown]
  - Off label use [Unknown]

NARRATIVE: CASE EVENT DATE: 20220501
